FAERS Safety Report 9229639 (Version 2)
Quarter: 2013Q4

REPORT INFORMATION
  Report Type: Spontaneous
  Country: JP (occurrence: JP)
  Receive Date: 20130415
  Receipt Date: 20131119
  Transmission Date: 20140711
  Serious: Yes (Life-Threatening, Hospitalization)
  Sender: FDA-Public Use
  Company Number: JP-AMGEN-JPNSP2013025364

PATIENT
  Age: 57 Year
  Sex: Male
  Weight: 62 kg

DRUGS (55)
  1. VECTIBIX [Suspect]
     Indication: RECTAL CANCER
     Dosage: 363 MG, Q2WK
     Route: 041
     Dates: start: 20110322, end: 20110622
  2. VECTIBIX [Suspect]
     Dosage: 363 MG, 1 IN 28 DAYS
     Route: 041
     Dates: start: 20110720, end: 20120425
  3. VECTIBIX [Suspect]
     Dosage: 363 MG, 1 IN 20 DAYS
     Route: 041
     Dates: start: 20120515, end: 20120515
  4. VECTIBIX [Suspect]
     Dosage: 363 MG, 1 IN 29 DAYS
     Route: 041
     Dates: start: 20120613, end: 20120613
  5. VECTIBIX [Suspect]
     Dosage: 363 MG, 1 IN 28 DAYS
     Route: 041
     Dates: start: 20120711, end: 20120711
  6. VECTIBIX [Suspect]
     Dosage: 363 MG, 1 IN 21 DAYS
     Route: 041
     Dates: start: 20120801, end: 20120801
  7. VECTIBIX [Suspect]
     Dosage: 363 MG, 1 IN 28 DAYS
     Route: 041
     Dates: start: 20120829, end: 20121121
  8. VECTIBIX [Suspect]
     Dosage: 365 MG, 1 IN 28 DAYS
     Route: 041
     Dates: start: 20121219, end: 20130213
  9. VECTIBIX [Suspect]
     Dosage: 365 MG, 1 IN 28 DAYS
     Route: 041
     Dates: start: 20130306, end: 20130306
  10. CAMPTO [Suspect]
     Indication: RECTAL CANCER
     Dosage: 240 MG, 1 IN 28 DAYS
     Route: 041
     Dates: start: 20120829, end: 20130213
  11. CAMPTO [Suspect]
     Dosage: 240 MG, 1 IN 21 DAYS
     Route: 041
     Dates: start: 20130306, end: 20130306
  12. ECARD [Concomitant]
     Indication: HYPERTENSION
     Dosage: 1 DF, QD
     Route: 048
  13. IRINOTECAN HYDROCHLORIDE [Concomitant]
     Indication: RECTAL CANCER
     Dosage: 240 MG, Q2WK
     Route: 041
     Dates: start: 20110322, end: 20110622
  14. IRINOTECAN HYDROCHLORIDE [Concomitant]
     Dosage: 240 MG, 1 IN 28 DAYS
     Route: 041
     Dates: start: 20110720, end: 20120425
  15. IRINOTECAN HYDROCHLORIDE [Concomitant]
     Dosage: 240 MG, 1 IN 20 DAYS
     Route: 041
     Dates: start: 20120515, end: 20120515
  16. IRINOTECAN HYDROCHLORIDE [Concomitant]
     Dosage: 240 MG, 1 IN 29 DAYS
     Route: 041
     Dates: start: 20120613, end: 20120613
  17. IRINOTECAN HYDROCHLORIDE [Concomitant]
     Dosage: 240 MG, 1 IN 28 DAYS
     Route: 041
     Dates: start: 20120711, end: 20120711
  18. IRINOTECAN HYDROCHLORIDE [Concomitant]
     Dosage: 240 MG, 1 IN 21 DAYS
     Route: 041
     Dates: start: 20120801, end: 20120801
  19. 5-FU                               /00098801/ [Concomitant]
     Indication: RECTAL CANCER
     Dosage: 650 MG, Q2WK
     Route: 040
     Dates: start: 20110322, end: 20110622
  20. 5-FU                               /00098801/ [Concomitant]
     Dosage: 3940 MG, Q2WK
     Route: 041
     Dates: start: 20110322, end: 20110622
  21. 5-FU                               /00098801/ [Concomitant]
     Dosage: 650 MG, 1 IN 28 DAYS
     Route: 040
     Dates: start: 20110720, end: 20120425
  22. 5-FU                               /00098801/ [Concomitant]
     Dosage: 3940 MG, 1 IN 28 DAYS
     Route: 041
     Dates: start: 20110720, end: 20120425
  23. 5-FU                               /00098801/ [Concomitant]
     Dosage: 650 MG, 1 IN 20 DAYS
     Route: 040
     Dates: start: 20120515, end: 20120515
  24. 5-FU                               /00098801/ [Concomitant]
     Dosage: 3940 MG, 1 IN 20 DAYS
     Route: 041
     Dates: start: 20120515, end: 20120515
  25. 5-FU                               /00098801/ [Concomitant]
     Dosage: 650 MG, 1 IN 29 DAYS
     Route: 040
     Dates: start: 20120613, end: 20120613
  26. 5-FU                               /00098801/ [Concomitant]
     Dosage: 3940 MG, 1 IN 29 DAYS
     Route: 041
     Dates: start: 20120613, end: 20120613
  27. 5-FU                               /00098801/ [Concomitant]
     Dosage: 650 MG, 1 IN 28 DAYS
     Route: 040
     Dates: start: 20120711, end: 20120711
  28. 5-FU                               /00098801/ [Concomitant]
     Dosage: 3940 MG, 1 IN 28 DAYS
     Route: 041
     Dates: start: 20120711, end: 20120711
  29. 5-FU                               /00098801/ [Concomitant]
     Dosage: 650 MG, 1 IN 21 DAYS
     Route: 040
     Dates: start: 20120801, end: 20120801
  30. 5-FU                               /00098801/ [Concomitant]
     Dosage: 3940 MG, 1 IN 21 DAYS
     Route: 041
     Dates: start: 20120801, end: 20120801
  31. 5-FU                               /00098801/ [Concomitant]
     Dosage: 650 MG, 1 IN 28 DAYS
     Route: 040
     Dates: start: 20120829, end: 20121121
  32. 5-FU                               /00098801/ [Concomitant]
     Dosage: 3940 MG, 1 IN 28 DAYS
     Route: 041
     Dates: start: 20120829, end: 20121121
  33. 5-FU                               /00098801/ [Concomitant]
     Dosage: 650 MG, 1 IN 28 DAYS
     Route: 040
     Dates: start: 20121219, end: 20130213
  34. 5-FU                               /00098801/ [Concomitant]
     Dosage: 3950 MG, 1 IN 28 DAYS
     Route: 041
     Dates: start: 20121219, end: 20130213
  35. 5-FU                               /00098801/ [Concomitant]
     Dosage: 650 MG, 1 IN 21 DAYS
     Route: 040
     Dates: start: 20130306, end: 20130306
  36. 5-FU                               /00098801/ [Concomitant]
     Dosage: 3950 MG, 1 IN 21 DAYS
     Route: 041
     Dates: start: 20130306, end: 20130306
  37. CALCIUM LEVOFOLINATE [Concomitant]
     Indication: RECTAL CANCER
     Dosage: 325 MG, Q2WK
     Route: 041
     Dates: start: 20110322, end: 20110622
  38. CALCIUM LEVOFOLINATE [Concomitant]
     Dosage: 325 MG, 1 IN 28 DAYS
     Route: 041
     Dates: start: 20110720, end: 20120425
  39. CALCIUM LEVOFOLINATE [Concomitant]
     Dosage: 325 MG, 1 IN 20 DAYS
     Route: 041
     Dates: start: 20120515, end: 20120515
  40. CALCIUM LEVOFOLINATE [Concomitant]
     Dosage: 325 MG,  1 IN 29 DAYS
     Route: 041
     Dates: start: 20120613, end: 20120613
  41. CALCIUM LEVOFOLINATE [Concomitant]
     Dosage: 325 MG,  1 IN 28 DAYS
     Route: 041
     Dates: start: 20120711, end: 20120711
  42. CALCIUM LEVOFOLINATE [Concomitant]
     Dosage: 325 MG, 1 IN 21 DAYS
     Route: 041
     Dates: start: 20120801, end: 20120801
  43. CALCIUM LEVOFOLINATE [Concomitant]
     Dosage: 325 MG, 1 IN 28 DAYS
     Route: 041
     Dates: start: 20120829, end: 20130213
  44. CALCIUM LEVOFOLINATE [Concomitant]
     Dosage: 325 MG, 1 IN 21 DAYS
     Route: 041
     Dates: start: 20130306, end: 20130306
  45. ALOXI [Concomitant]
     Dosage: 0.75 MG, UNK
     Route: 041
     Dates: start: 20110322, end: 20130306
  46. DECADRON                           /00016002/ [Concomitant]
     Dosage: 3.3 MG, UNK
     Route: 041
     Dates: start: 20110322, end: 20130306
  47. FERROMIA [Concomitant]
     Indication: ANAEMIA
     Dosage: 50 MG, BID
     Route: 048
     Dates: start: 20110305, end: 20110510
  48. EMEND                              /01627301/ [Concomitant]
     Indication: PROPHYLAXIS OF NAUSEA AND VOMITING
     Dosage: 1 DF, QD
     Route: 048
     Dates: start: 20110308, end: 20110310
  49. DEXAMETHASONE [Concomitant]
     Indication: PROPHYLAXIS OF NAUSEA AND VOMITING
     Dosage: 4 MG, FOUR TIMES IN TWO WEEK
     Route: 048
     Dates: start: 20110309, end: 20110324
  50. GASTER D [Concomitant]
     Indication: GASTRITIS
     Dosage: 20 MG, BID
     Route: 048
     Dates: start: 20110308, end: 20120517
  51. OMEPRAL                            /00661201/ [Concomitant]
     Indication: DUODENAL ULCER
     Dosage: 20 MG, QD
     Route: 048
     Dates: start: 20120518, end: 20120710
  52. PARIET [Concomitant]
     Indication: DUODENAL ULCER
     Dosage: 10 MG, QD
     Route: 048
     Dates: start: 20120711
  53. FLIVAS [Concomitant]
     Indication: BENIGN PROSTATIC HYPERPLASIA
     Dosage: 50 MG, QD
     Route: 048
  54. URIEF [Concomitant]
     Indication: BENIGN PROSTATIC HYPERPLASIA
     Dosage: 4 MG, QD
     Route: 048
  55. MINOMYCIN [Concomitant]
     Indication: PROPHYLAXIS
     Dosage: 50 MG, BID
     Route: 048
     Dates: start: 20110322, end: 20110510

REACTIONS (6)
  - Renal failure acute [Recovered/Resolved]
  - Diarrhoea [Recovering/Resolving]
  - Stomatitis [Recovered/Resolved]
  - Dermatitis acneiform [Recovering/Resolving]
  - Paronychia [Unknown]
  - Dry skin [Unknown]
